FAERS Safety Report 8241618-8 (Version None)
Quarter: 2012Q1

REPORT INFORMATION
  Report Type: 
  Country: None (occurrence: None)
  Receive Date: 20120328
  Receipt Date: 20120322
  Transmission Date: 20120608
  Serious: Yes (Other)
  Sender: FDA-Public Use
  Company Number: US-PFIZER INC-2012053191

PATIENT
  Sex: Male

DRUGS (11)
  1. LEXAPRO [Concomitant]
     Dosage: 10 MG, 1X/DAY
  2. ASPIRIN [Concomitant]
     Dosage: 81 MG, 1X/DAY
  3. COREG [Concomitant]
     Dosage: 12.5 MG, 2X/DAY
  4. LIPITOR [Suspect]
     Dosage: 80 MG, UNK
  5. LIPITOR [Suspect]
     Dosage: 80 MG, AT BEDTIME
  6. NITROSTAT [Concomitant]
     Dosage: AS NEEDED
  7. LEXAPRO [Concomitant]
     Dosage: 20 MG, 1X/DAY
  8. LIPITOR [Suspect]
     Dosage: 40 MG, UNK
  9. PLAVIX [Concomitant]
     Dosage: 75 MG, 1X/DAY
  10. QUINAPRIL HYDROCHLORIDE [Concomitant]
     Dosage: 5 MG 1/2 EVERY DAY
  11. XANAX [Concomitant]
     Dosage: 2 MG, 3X/DAY

REACTIONS (7)
  - MUSCULAR WEAKNESS [None]
  - MYOCARDIAL INFARCTION [None]
  - IRRITABILITY [None]
  - SCHIZOPHRENIA [None]
  - BIPOLAR DISORDER [None]
  - MYALGIA [None]
  - AGGRESSION [None]
